FAERS Safety Report 8046653 (Version 3)
Quarter: 2012Q4

REPORT INFORMATION
  Report Type: 
  Country: FR (occurrence: FR)
  Receive Date: 20110721
  Receipt Date: 20121220
  Transmission Date: 20130627
  Serious: Yes (Congenital Anomaly)
  Sender: FDA-Public Use
  Company Number: FR-UCBSA-022159

PATIENT
  Age: 0 Year
  Sex: Male
  Weight: 10 kg

DRUGS (6)
  1. KEPPRA [Suspect]
     Indication: EPILEPSY
     Route: 064
     Dates: end: 201005
  2. KEPPRA [Suspect]
     Indication: EPILEPSY
     Route: 064
     Dates: start: 2010
  3. DEPAKINE CHRONO [Suspect]
     Indication: EPILEPSY
     Route: 064
     Dates: end: 201005
  4. URBANYL [Suspect]
     Indication: EPILEPSY
     Route: 064
     Dates: end: 201005
  5. DONORMYL [Suspect]
     Indication: POISONING DELIBERATE
     Route: 064
     Dates: start: 20100522, end: 20100522
  6. CIPROFLOXACINE [Concomitant]
     Indication: POISONING DELIBERATE
     Dosage: 2 UNITS
     Route: 064
     Dates: start: 20100522, end: 20100522

REACTIONS (9)
  - External auditory canal atresia [Recovered/Resolved with Sequelae]
  - Hearing impaired [Unknown]
  - Echography abnormal [Unknown]
  - Dysplasia [Unknown]
  - Weight decreased [Unknown]
  - Kidney enlargement [Unknown]
  - Metabolic acidosis [Unknown]
  - Anogenital warts [Unknown]
  - Foetal exposure during pregnancy [Unknown]
